FAERS Safety Report 20908134 (Version 6)
Quarter: 2023Q1

REPORT INFORMATION
  Report Type: Report from Study
  Country: AR (occurrence: AR)
  Receive Date: 20220602
  Receipt Date: 20230222
  Transmission Date: 20230417
  Serious: Yes (Hospitalization)
  Sender: FDA-Public Use
  Company Number: AR-BRISTOL-MYERS SQUIBB COMPANY-BMS-2021-121501

PATIENT
  Age: 53 Year
  Sex: Male
  Weight: 86 kg

DRUGS (16)
  1. IPILIMUMAB [Suspect]
     Active Substance: IPILIMUMAB
     Indication: Colorectal cancer metastatic
     Route: 042
     Dates: start: 20210924, end: 20210924
  2. OXALIPLATIN [Suspect]
     Active Substance: OXALIPLATIN
     Indication: Colorectal cancer metastatic
     Dosage: LAST DOSE OF 100 MG ON 27-MAY-2020
     Route: 042
     Dates: start: 20200402, end: 20200527
  3. FLUOROURACIL [Suspect]
     Active Substance: FLUOROURACIL
     Indication: Colorectal cancer metastatic
     Dosage: LAST DOSE 500 MG IV BOLUS RECEIVED ON 25-AUG-2021
     Route: 040
     Dates: start: 20200402
  4. FLUOROURACIL [Suspect]
     Active Substance: FLUOROURACIL
     Dosage: LAST DOSE 3000 MG WAS ADMINISTERED ON 27-AUG-2021
     Route: 042
     Dates: start: 20200402, end: 20210827
  5. LEUCOVORIN [Suspect]
     Active Substance: LEUCOVORIN
     Indication: Colorectal cancer metastatic
     Dosage: LAST DOSE 375 MG ON 25-AUG-2021
     Route: 042
     Dates: start: 20200402, end: 20210825
  6. BEVACIZUMAB [Suspect]
     Active Substance: BEVACIZUMAB
     Indication: Colorectal cancer metastatic
     Dosage: LAST DOSE OF 375 MG RECEIVED ON 25-AUG-2021
     Route: 042
     Dates: start: 20200402, end: 20210825
  7. ALLOPURINOL [Concomitant]
     Active Substance: ALLOPURINOL
     Indication: Product used for unknown indication
     Route: 048
     Dates: start: 20210817
  8. CALCIUM POLYSTYRENE SULFONATE [Concomitant]
     Active Substance: CALCIUM POLYSTYRENE SULFONATE
     Indication: Product used for unknown indication
     Route: 048
     Dates: start: 20210817
  9. FLUDROCORTISONE [Concomitant]
     Active Substance: FLUDROCORTISONE
     Indication: Product used for unknown indication
     Route: 048
     Dates: start: 20210823
  10. TAMSULOSIN HYDROCHLORIDE [Concomitant]
     Active Substance: TAMSULOSIN HYDROCHLORIDE
     Indication: Prophylaxis
     Route: 048
     Dates: start: 20210928
  11. HYDROCORTISONE [Concomitant]
     Active Substance: HYDROCORTISONE
     Indication: Prophylaxis
     Route: 048
     Dates: start: 20211001
  12. GLICLAZIDE [Concomitant]
     Active Substance: GLICLAZIDE
     Indication: Prophylaxis
     Dosage: DOSE: 2 (UNIT NOS)
     Route: 048
     Dates: start: 20200601
  13. METFORMIN HYDROCHLORIDE [Concomitant]
     Active Substance: METFORMIN HYDROCHLORIDE
     Indication: Product used for unknown indication
     Route: 048
     Dates: start: 2015
  14. INSULIN NOS [Concomitant]
     Active Substance: INSULIN NOS
     Indication: Product used for unknown indication
     Dosage: DOSE: 18 (UNIT NOS)
     Route: 050
     Dates: start: 20201216
  15. OMEPRAZOLE [Concomitant]
     Active Substance: OMEPRAZOLE
     Indication: Prophylaxis
     Route: 048
     Dates: start: 20211004
  16. DAPAGLIFLOZIN [Concomitant]
     Active Substance: DAPAGLIFLOZIN
     Indication: Product used for unknown indication
     Dosage: DOSE: 1 (UNIT NOS)
     Route: 048
     Dates: start: 20200603

REACTIONS (1)
  - Pleural effusion [Recovered/Resolved]

NARRATIVE: CASE EVENT DATE: 20211110
